FAERS Safety Report 6382809-0 (Version None)
Quarter: 2009Q3

REPORT INFORMATION
  Report Type: 
  Country: None (occurrence: None)
  Receive Date: 20090928
  Receipt Date: 20090928
  Transmission Date: 20100115
  Serious: Yes (Other)
  Sender: FDA-Public Use
  Company Number: None

PATIENT
  Age: 39 Year
  Sex: Male
  Weight: 115.6672 kg

DRUGS (1)
  1. SINGULAIR [Suspect]
     Indication: ASTHMA
     Dosage: 10 MG. 1 PER DAY PO OVER 3 YEARS
     Route: 048

REACTIONS (9)
  - ABNORMAL DREAMS [None]
  - ANGER [None]
  - FATIGUE [None]
  - HOSTILITY [None]
  - INSOMNIA [None]
  - IRRITABILITY [None]
  - MOOD SWINGS [None]
  - POOR QUALITY SLEEP [None]
  - SLEEP DISORDER [None]
